FAERS Safety Report 7585347-2 (Version None)
Quarter: 2011Q3

REPORT INFORMATION
  Report Type: 
  Country: None (occurrence: None)
  Receive Date: 20110701
  Receipt Date: 20081001
  Transmission Date: 20111222
  Serious: Yes (Other)
  Sender: FDA-Public Use
  Company Number: US-BAYER-201040738NA

PATIENT
  Age: 44 Year
  Sex: Male
  Weight: 104 kg

DRUGS (23)
  1. EFFEXOR [Concomitant]
     Route: 048
  2. PAPAVERINE [Concomitant]
     Dosage: 10 ML, UNK, IRRIGATION
     Dates: start: 20040414, end: 20040414
  3. TOPROL-XL [Concomitant]
     Route: 048
  4. HEPARIN [Concomitant]
     Dosage: 5,000UNITS
     Route: 042
     Dates: start: 20040414, end: 20040414
  5. ATROPINE [Concomitant]
     Dosage: 1 AMP
     Route: 042
     Dates: start: 20040414, end: 20040414
  6. SUBLIMAZE PRESERVATIVE FREE [Concomitant]
     Dosage: UNK
     Route: 042
     Dates: start: 20040414, end: 20040414
  7. TRASYLOL [Suspect]
     Indication: CORONARY ARTERY BYPASS
     Dosage: 2000000 U, ONCE, PUMP PRIME
     Route: 042
     Dates: start: 20040416, end: 20040416
  8. DIOVAN [Concomitant]
     Dosage: 160 MG, UNK
     Route: 048
     Dates: start: 20040814
  9. POLYMYXIN [Concomitant]
     Dosage: 500,000UNITS,UNK, IRRIGATION
     Dates: start: 20040414, end: 20040414
  10. KEFZOL [Concomitant]
     Dosage: 2 G, UNK
     Route: 042
     Dates: start: 20040414, end: 20040414
  11. HEPARIN [Concomitant]
     Dosage: 28,000UNITS, UNK
     Route: 042
     Dates: start: 20040414, end: 20040414
  12. PROTAMINE SULFATE [Concomitant]
     Dosage: 600 MG, UNK
     Route: 042
     Dates: start: 20040414, end: 20040414
  13. HEPARIN [Concomitant]
     Dosage: 5,000UNITS, PUMP PRIME
     Dates: start: 20040414, end: 20040414
  14. ZOCOR [Concomitant]
     Route: 048
  15. PRAVACHOL [Concomitant]
     Route: 048
  16. LIPITOR [Concomitant]
     Route: 048
  17. AMBIEN [Concomitant]
     Route: 048
  18. LIDOCAINE [Concomitant]
     Dosage: UNK
     Route: 042
     Dates: start: 20040414, end: 20040416
  19. VERSED [Concomitant]
     Dosage: 20 MG, UNK
     Route: 042
     Dates: start: 20040414, end: 20040414
  20. MANNITOL [Concomitant]
     Dosage: 25 G, UNK, PUMP PRIME
     Dates: start: 20040414, end: 20040414
  21. ZETIA [Concomitant]
     Route: 048
  22. AMIODARONE HCL [Concomitant]
     Dosage: UNK
     Route: 042
     Dates: start: 20040414, end: 20040414
  23. CONTRAST MEDIA [Concomitant]
     Indication: COMPUTERISED TOMOGRAM
     Dosage: UNK
     Dates: start: 20040421

REACTIONS (9)
  - LIVER INJURY [None]
  - HEART INJURY [None]
  - PAIN [None]
  - EMOTIONAL DISTRESS [None]
  - INJURY [None]
  - VASCULAR INJURY [None]
  - RENAL IMPAIRMENT [None]
  - GASTROINTESTINAL INJURY [None]
  - ANXIETY [None]
